FAERS Safety Report 13534140 (Version 2)
Quarter: 2017Q3

REPORT INFORMATION
  Report Type: Spontaneous
  Country: US (occurrence: US)
  Receive Date: 20170510
  Receipt Date: 20170725
  Transmission Date: 20171127
  Serious: Yes (Other)
  Sender: FDA-Public Use
  Company Number: US-BRISTOL-MYERS SQUIBB COMPANY-BMS-2017-040064

PATIENT
  Sex: Female

DRUGS (2)
  1. ABILIFY [Suspect]
     Active Substance: ARIPIPRAZOLE
     Indication: ANXIETY
     Route: 065
  2. ABILIFY [Suspect]
     Active Substance: ARIPIPRAZOLE
     Indication: MAJOR DEPRESSION
     Dosage: 1 DF, UNK
     Route: 065
     Dates: start: 20070101, end: 20160708

REACTIONS (6)
  - Psychosexual disorder [Unknown]
  - Suicide attempt [Unknown]
  - Impulsive behaviour [Unknown]
  - Gambling [Unknown]
  - Obsessive-compulsive disorder [Unknown]
  - Suicidal ideation [Unknown]
